FAERS Safety Report 4337133-4 (Version None)
Quarter: 2004Q2

REPORT INFORMATION
  Report Type: 
  Country: None (occurrence: None)
  Receive Date: 20040408
  Receipt Date: 20040330
  Transmission Date: 20050107
  Serious: Yes (Hospitalization, Other)
  Sender: FDA-Public Use
  Company Number: GBWYE358720OCT03

PATIENT
  Age: 74 Year
  Sex: Male

DRUGS (9)
  1. RAPAMUNE [Suspect]
     Indication: IMMUNOSUPPRESSANT DRUG THERAPY
     Dosage: 5 MG 1X PER 1 DAY ORAL; 3 MG 1X PER 1 DAY ORAL
     Route: 048
     Dates: start: 20030326
  2. CELLCEPT [Suspect]
     Dosage: 1000 MG 2X PER 1 DAY ORAL; 500 MG 3X PER 1 DAY ORAL
     Route: 048
     Dates: start: 20030325
  3. PREDNISOLONE [Suspect]
     Dosage: 5 MG 1X PER 1 DAY ORAL
     Route: 048
  4. ALFACALCIDOL (ALFACALCIDOL) [Concomitant]
  5. ATENOLOL [Concomitant]
  6. ASPIRIN [Concomitant]
  7. LANSOPRAZOLE [Concomitant]
  8. QUINIE SULPHATE (QUININE SULFATE) [Concomitant]
  9. DOXAZOSIN MESLYLATE [Concomitant]

REACTIONS (2)
  - IRON DEFICIENCY ANAEMIA [None]
  - UPPER RESPIRATORY TRACT INFECTION [None]
